FAERS Safety Report 8128772-3 (Version None)
Quarter: 2012Q1

REPORT INFORMATION
  Report Type: 
  Country: None (occurrence: None)
  Receive Date: 20120210
  Receipt Date: 20120127
  Transmission Date: 20120608
  Serious: Yes (Death)
  Sender: FDA-Public Use
  Company Number: GR-CELGENEUS-066-20785-12012813

PATIENT
  Age: 76 Year
  Sex: Male

DRUGS (4)
  1. DOXYCYCLINE [Concomitant]
     Route: 065
  2. RIFAMPICIN [Concomitant]
     Route: 065
  3. THALIDOMIDE [Suspect]
     Route: 048
  4. CIPROFLOXACIN [Concomitant]
     Route: 065

REACTIONS (3)
  - LEPROMATOUS LEPROSY [None]
  - GASTRIC CANCER [None]
  - METASTATIC NEOPLASM [None]
